FAERS Safety Report 19904835 (Version 1)
Quarter: 2021Q4

REPORT INFORMATION
  Report Type: Spontaneous
  Country: US (occurrence: US)
  Receive Date: 20211001
  Receipt Date: 20211001
  Transmission Date: 20220304
  Serious: No
  Sender: FDA-Public Use
  Company Number: US-JNJFOC-20210938582

PATIENT
  Age: 29 Year
  Sex: Male

DRUGS (4)
  1. TYLENOL [Suspect]
     Active Substance: ACETAMINOPHEN
     Indication: Fatigue
     Route: 065
     Dates: start: 20210409
  2. TYLENOL [Suspect]
     Active Substance: ACETAMINOPHEN
     Indication: Headache
  3. TYLENOL [Suspect]
     Active Substance: ACETAMINOPHEN
     Indication: Feeling abnormal
  4. COVID-19 VACCINE [Concomitant]
     Indication: Product used for unknown indication
     Route: 065
     Dates: start: 20210407

REACTIONS (1)
  - Product use in unapproved indication [Unknown]

NARRATIVE: CASE EVENT DATE: 20210409
